FAERS Safety Report 21499106 (Version 1)
Quarter: 2022Q4

REPORT INFORMATION
  Report Type: Spontaneous
  Country: IT (occurrence: IT)
  Receive Date: 20221024
  Receipt Date: 20221024
  Transmission Date: 20230112
  Serious: Yes (Hospitalization)
  Sender: FDA-Public Use
  Company Number: None

PATIENT
  Sex: Female

DRUGS (3)
  1. DIAZEPAM [Suspect]
     Active Substance: DIAZEPAM
     Indication: Product used for unknown indication
     Dates: start: 20220925, end: 20220925
  2. ARIPIPRAZOLE [Suspect]
     Active Substance: ARIPIPRAZOLE
     Indication: Product used for unknown indication
     Dosage: DOSAGGIO: 55?UNITA DI MISURA: MILLIGRAMMI?FREQUENZA SOMMINISTRAZIONE: TOTALE?VIA SOMMINISTRAZIONE...
     Dates: start: 20220925, end: 20220925
  3. SERTRALINE [Suspect]
     Active Substance: SERTRALINE HYDROCHLORIDE
     Indication: Product used for unknown indication
     Dosage: DOSAGGIO: 1350?UNITA DI MISURA: MILLIGRAMMI?FREQUENZA SOMMINISTRAZIONE: TOTALE?VIA SOMMINISTRAZIO...
     Dates: start: 20220925, end: 20220925

REACTIONS (2)
  - Loss of consciousness [Recovering/Resolving]
  - Drug abuse [Recovering/Resolving]

NARRATIVE: CASE EVENT DATE: 20220925
